FAERS Safety Report 9209867 (Version 1)
Quarter: 2013Q2

REPORT INFORMATION
  Report Type: Spontaneous
  Country: US (occurrence: US)
  Receive Date: 20130404
  Receipt Date: 20130404
  Transmission Date: 20140414
  Serious: No
  Sender: FDA-Public Use
  Company Number: US-ASTELLAS-2013US000781

PATIENT
  Age: 59 Year
  Sex: Male

DRUGS (2)
  1. MYRBETRIQ [Suspect]
     Indication: POLLAKIURIA
     Dosage: 25 MG, UNKNOWN/D
     Route: 048
     Dates: start: 201212, end: 20130114
  2. MYRBETRIQ [Suspect]
     Indication: MICTURITION URGENCY

REACTIONS (1)
  - Drug ineffective [Unknown]
